FAERS Safety Report 25483403 (Version 2)
Quarter: 2025Q3

REPORT INFORMATION
  Report Type: Spontaneous
  Country: US (occurrence: US)
  Receive Date: 20250626
  Receipt Date: 20250904
  Transmission Date: 20251020
  Serious: Yes (Other)
  Sender: NOVARTIS
  Company Number: US-002147023-NVSC2025US099187

PATIENT

DRUGS (1)
  1. KESIMPTA [Suspect]
     Active Substance: OFATUMUMAB
     Indication: Product used for unknown indication
     Route: 065

REACTIONS (5)
  - Pancreatitis acute [Unknown]
  - Headache [Unknown]
  - Nausea [Unknown]
  - Lipase increased [Unknown]
  - Hepatic enzyme increased [Unknown]
